FAERS Safety Report 5214902-X (Version None)
Quarter: 2007Q1

REPORT INFORMATION
  Report Type: 
  Country: None (occurrence: None)
  Receive Date: 20061108
  Receipt Date: 20051006
  Transmission Date: 20070707
  Serious: Yes (Other)
  Sender: FDA-Public Use
  Company Number: PHEH2005US11150

PATIENT
  Sex: Female

DRUGS (10)
  1. ESTRADERM [Suspect]
     Indication: HORMONE REPLACEMENT THERAPY
     Dates: start: 19900701, end: 20010401
  2. PREMARIN [Suspect]
     Dates: start: 19900701, end: 20010401
  3. PROVERA [Suspect]
     Indication: HORMONE REPLACEMENT THERAPY
     Dates: start: 19900701, end: 20010401
  4. ESTRACE [Suspect]
     Indication: HORMONE REPLACEMENT THERAPY
     Dates: start: 19900701, end: 20010401
  5. CLIMARA [Suspect]
     Indication: HORMONE REPLACEMENT THERAPY
     Dates: start: 19900701, end: 20010401
  6. OGEN [Suspect]
     Indication: HORMONE REPLACEMENT THERAPY
     Dates: start: 19900701, end: 20010401
  7. PREMPRO [Suspect]
     Indication: HORMONE REPLACEMENT THERAPY
     Dates: start: 19900701, end: 20010401
  8. PREMPHASE (PREMARIN;CYCRIN 14/14) [Suspect]
     Indication: HORMONE REPLACEMENT THERAPY
     Dates: start: 19900701, end: 20010401
  9. CYCRIN [Suspect]
     Indication: HORMONE REPLACEMENT THERAPY
     Dates: start: 19900701, end: 20010401
  10. PROMETRIUM [Suspect]
     Indication: HORMONE REPLACEMENT THERAPY
     Dates: start: 19990701, end: 20010401

REACTIONS (2)
  - BREAST CANCER [None]
  - INJURY [None]
